FAERS Safety Report 5514858-6 (Version None)
Quarter: 2007Q4

REPORT INFORMATION
  Report Type: 
  Country: None (occurrence: None)
  Receive Date: 20071109
  Receipt Date: 20071029
  Transmission Date: 20080405
  Serious: Yes (Hospitalization, Other)
  Sender: FDA-Public Use
  Company Number: 42272

PATIENT
  Age: 9 Year
  Sex: Female

DRUGS (3)
  1. METHOTREXATE [Suspect]
     Indication: METASTASES TO CENTRAL NERVOUS SYSTEM
     Dosage: 4850MG/IV
     Route: 042
     Dates: start: 20071026
  2. METHOTREXATE [Suspect]
     Indication: NEOPLASM RECURRENCE
     Dosage: 4850MG/IV
     Route: 042
     Dates: start: 20071026
  3. VINCRISTINE [Concomitant]

REACTIONS (1)
  - HYPONATRAEMIA [None]
